FAERS Safety Report 20976741 (Version 1)
Quarter: 2022Q2

REPORT INFORMATION
  Report Type: Spontaneous
  Country: AU (occurrence: AU)
  Receive Date: 20220617
  Receipt Date: 20220617
  Transmission Date: 20220721
  Serious: Yes (Other)
  Sender: FDA-Public Use
  Company Number: AU-MLMSERVICE-20220530-3582719-1

PATIENT
  Age: 40 Year
  Sex: Male

DRUGS (5)
  1. DOXORUBICIN [Suspect]
     Active Substance: DOXORUBICIN
     Indication: Nephroblastoma
     Dosage: 60 MG (30MG/M2); EVERY 3 WEEKS, 6 CYCLICAL
     Route: 042
  2. DOXORUBICIN [Suspect]
     Active Substance: DOXORUBICIN
     Dosage: AFTER CYCLE 4, DOXORUBICIN WAS DECREASED BY 25% . A REDUCED DOSE OF DOXORUBICIN CONTINUED FOR ONE MO
     Route: 042
  3. DOXORUBICIN [Suspect]
     Active Substance: DOXORUBICIN
     Dosage: 30 MG/M2, 60 MG
     Route: 042
  4. VINCRISTINE [Suspect]
     Active Substance: VINCRISTINE
     Indication: Nephroblastoma
     Dosage: 2 MG (1.5 MG/M2); EVERY 3 WEEKS, 8 CYCLICAL
     Route: 042
  5. ACTINOMYCIN D [Suspect]
     Active Substance: DACTINOMYCIN
     Indication: Nephroblastoma
     Dosage: 2 MG (1.5 MG/M2); EVERY 3 WEEKS, 8 CYCLICAL
     Route: 042

REACTIONS (13)
  - Neutropenia [Recovered/Resolved]
  - Neuropathy peripheral [Recovered/Resolved]
  - Lymphopenia [Recovered/Resolved]
  - Alopecia [Unknown]
  - Taste disorder [Unknown]
  - Nausea [Unknown]
  - Mucosal inflammation [Unknown]
  - Hyperaesthesia [Unknown]
  - Stomatitis [Unknown]
  - Fatigue [Unknown]
  - Lethargy [Unknown]
  - Dysaesthesia [Unknown]
  - Hepatic function abnormal [Recovered/Resolved]
